FAERS Safety Report 15137713 (Version 1)
Quarter: 2018Q3

REPORT INFORMATION
  Report Type: Report from Study
  Country: CA (occurrence: CA)
  Receive Date: 20180712
  Receipt Date: 20180712
  Transmission Date: 20181010
  Serious: Yes (Other)
  Sender: FDA-Public Use
  Company Number: CA-ROCHE-2152909

PATIENT
  Sex: Female

DRUGS (4)
  1. FOLIC ACID. [Concomitant]
     Active Substance: FOLIC ACID
  2. ACTEMRA [Suspect]
     Active Substance: TOCILIZUMAB
     Indication: RHEUMATOID ARTHRITIS
     Dosage: BI?WEEKLY
     Route: 058
     Dates: start: 20150601, end: 201806
  3. VALSARTAN. [Concomitant]
     Active Substance: VALSARTAN
  4. NAPROXEN. [Concomitant]
     Active Substance: NAPROXEN
     Route: 065

REACTIONS (6)
  - Cartilage injury [Not Recovered/Not Resolved]
  - Synovial cyst [Not Recovered/Not Resolved]
  - Blood pressure fluctuation [Unknown]
  - Epistaxis [Unknown]
  - Joint swelling [Not Recovered/Not Resolved]
  - Depressed mood [Unknown]
